FAERS Safety Report 25140877 (Version 1)
Quarter: 2025Q1

REPORT INFORMATION
  Report Type: Spontaneous
  Country: US (occurrence: US)
  Receive Date: 20250331
  Receipt Date: 20250331
  Transmission Date: 20250408
  Serious: Yes (Other)
  Sender: TEVA
  Company Number: US-TEVA-VS-3312740

PATIENT
  Age: 58 Year
  Sex: Male

DRUGS (4)
  1. AJOVY [Suspect]
     Active Substance: FREMANEZUMAB-VFRM
     Indication: Migraine
     Route: 065
     Dates: start: 2022, end: 202411
  2. AJOVY [Suspect]
     Active Substance: FREMANEZUMAB-VFRM
  3. QULIPTA [Concomitant]
     Active Substance: ATOGEPANT
     Indication: Migraine
     Route: 065
  4. NURTEC ODT [Concomitant]
     Active Substance: RIMEGEPANT SULFATE
     Indication: Product used for unknown indication
     Dosage: 1 TABLET EVERY 2 DAYS
     Route: 065

REACTIONS (6)
  - Syncope [Unknown]
  - Migraine [Not Recovered/Not Resolved]
  - Lacrimation increased [Unknown]
  - Dizziness [Unknown]
  - Inability to afford medication [Unknown]
  - Eye pain [Unknown]

NARRATIVE: CASE EVENT DATE: 20241101
